FAERS Safety Report 11865606 (Version 2)
Quarter: 2016Q1

REPORT INFORMATION
  Report Type: Spontaneous
  Country: JP (occurrence: JP)
  Receive Date: 20151223
  Receipt Date: 20160222
  Transmission Date: 20160526
  Serious: Yes (Hospitalization, Other)
  Sender: FDA-Public Use
  Company Number: JP-PFIZER INC-2015462475

PATIENT
  Age: 69 Year
  Sex: Female

DRUGS (7)
  1. ZITHROMAC [Suspect]
     Active Substance: AZITHROMYCIN DIHYDRATE
     Indication: PHARYNGITIS
     Dosage: 500 MG, DAILY
     Route: 048
     Dates: start: 20151127, end: 20151129
  2. LOXONIN [Concomitant]
     Active Substance: LOXOPROFEN SODIUM
     Dosage: UNK
  3. CARBOCISTEINE [Concomitant]
     Active Substance: CARBOCYSTEINE
     Indication: RHINORRHOEA
     Dosage: 250 MG, 2X/DAY
     Route: 048
     Dates: start: 20151127, end: 20151225
  4. THYRADIN [Concomitant]
     Active Substance: LEVOTHYROXINE
     Dosage: UNK
  5. EBASTEL [Concomitant]
     Active Substance: EBASTINE
     Indication: RHINORRHOEA
     Dosage: 5 MG, 2X/DAY
     Route: 048
     Dates: start: 20151127, end: 20151225
  6. KLARICID [Concomitant]
     Active Substance: CLARITHROMYCIN
     Indication: CHRONIC SINUSITIS
     Dosage: 50 MG, 2X/DAY
     Route: 048
     Dates: start: 20151127, end: 20151225
  7. DEPAS [Concomitant]
     Active Substance: ETIZOLAM
     Dosage: UNK

REACTIONS (3)
  - Loss of consciousness [Recovered/Resolved]
  - Abdominal pain [Recovered/Resolved]
  - Road traffic accident [Recovered/Resolved]

NARRATIVE: CASE EVENT DATE: 20151130
